FAERS Safety Report 7689434-X (Version None)
Quarter: 2011Q3

REPORT INFORMATION
  Report Type: 
  Country: None (occurrence: None)
  Receive Date: 20110817
  Receipt Date: 20110810
  Transmission Date: 20111222
  Serious: Yes (Hospitalization)
  Sender: FDA-Public Use
  Company Number: US-SANOFI-AVENTIS-2011SA051870

PATIENT
  Sex: Male

DRUGS (1)
  1. PLAVIX [Suspect]
     Route: 065

REACTIONS (1)
  - ILL-DEFINED DISORDER [None]
